FAERS Safety Report 9849362 (Version 1)
Quarter: 2014Q1

REPORT INFORMATION
  Report Type: Spontaneous
  Country: US (occurrence: None)
  Receive Date: 20140124
  Receipt Date: 20140124
  Transmission Date: 20141002
  Serious: Yes (Disabling)
  Sender: FDA-Public Use
  Company Number: None

PATIENT
  Age: 53 Year
  Sex: Female
  Weight: 65.77 kg

DRUGS (2)
  1. AVELOX [Suspect]
     Indication: DIVERTICULITIS
     Route: 048
     Dates: start: 20110916, end: 20110921
  2. CELEBREX [Concomitant]

REACTIONS (2)
  - Arthralgia [None]
  - Gait disturbance [None]
